FAERS Safety Report 5483596-0 (Version None)
Quarter: 2007Q4

REPORT INFORMATION
  Report Type: 
  Country: None (occurrence: None)
  Receive Date: 20071012
  Receipt Date: 20071002
  Transmission Date: 20080405
  Serious: Yes (Hospitalization)
  Sender: FDA-Public Use
  Company Number: DE-JNJFOC-20071001222

PATIENT
  Sex: Female
  Weight: 91.9 kg

DRUGS (4)
  1. INFLIXIMAB [Suspect]
  2. INFLIXIMAB [Suspect]
  3. INFLIXIMAB [Suspect]
     Indication: PSORIASIS
  4. FEMRANETTE [Concomitant]
     Indication: CONTRACEPTION
     Route: 048

REACTIONS (1)
  - ARTHRITIS [None]
